FAERS Safety Report 4889212-0 (Version None)
Quarter: 2006Q1

REPORT INFORMATION
  Report Type: 
  Country: None (occurrence: None)
  Receive Date: 20060120
  Receipt Date: 20060120
  Transmission Date: 20060701
  Serious: Yes (Hospitalization)
  Sender: FDA-Public Use
  Company Number: None

PATIENT
  Sex: Male
  Weight: 92.9874 kg

DRUGS (1)
  1. PAXIL CR [Suspect]
     Indication: POST-TRAUMATIC STRESS DISORDER
     Dosage: 1 A DAY
     Dates: start: 20030905, end: 20040404

REACTIONS (15)
  - ANGER [None]
  - ANORGASMIA [None]
  - ASTHENIA [None]
  - ERECTILE DYSFUNCTION [None]
  - FATIGUE [None]
  - FEELING HOT AND COLD [None]
  - HEADACHE [None]
  - HEART RATE INCREASED [None]
  - LIBIDO DECREASED [None]
  - MARITAL PROBLEM [None]
  - MEMORY IMPAIRMENT [None]
  - NIGHTMARE [None]
  - PAIN [None]
  - PAROSMIA [None]
  - VISUAL DISTURBANCE [None]
